FAERS Safety Report 17931268 (Version 1)
Quarter: 2020Q2

REPORT INFORMATION
  Report Type: Report from Study
  Country: US (occurrence: US)
  Receive Date: 20200623
  Receipt Date: 20200623
  Transmission Date: 20200714
  Serious: Yes (Other)
  Sender: FDA-Public Use
  Company Number: NVSC2019US053376

PATIENT
  Age: 57 Year
  Sex: Female

DRUGS (2)
  1. ENTRESTO [Suspect]
     Active Substance: SACUBITRIL\VALSARTAN
     Indication: CARDIAC FAILURE
     Dosage: 1 DF (97/103 MG), BID
     Route: 048
     Dates: start: 201901
  2. ENTRESTO [Suspect]
     Active Substance: SACUBITRIL\VALSARTAN
     Indication: HYPERTENSION
     Dosage: 200 MG (97MG SACUBITRIL/ 103MG VALSARTAN), BID
     Route: 048
     Dates: start: 20190201

REACTIONS (4)
  - Weight increased [Unknown]
  - Blood glucose decreased [Recovered/Resolved]
  - Loss of consciousness [Recovered/Resolved]
  - Increased appetite [Unknown]

NARRATIVE: CASE EVENT DATE: 20190201
